FAERS Safety Report 5089051-4 (Version None)
Quarter: 2006Q3

REPORT INFORMATION
  Report Type: 
  Country: None (occurrence: None)
  Receive Date: 20060825
  Receipt Date: 20060815
  Transmission Date: 20061208
  Serious: Yes (Other)
  Sender: FDA-Public Use
  Company Number: 2006UW16320

PATIENT
  Age: 26 Year
  Sex: Female
  Weight: 67.1 kg

DRUGS (8)
  1. SEROQUEL [Suspect]
     Indication: SLEEP DISORDER
     Route: 048
     Dates: start: 20050201
  2. SEROQUEL [Suspect]
     Indication: PARANOIA
     Route: 048
     Dates: start: 20050201
  3. SEROQUEL [Suspect]
     Dosage: 400 MG IN AM AND 400 MG PM
     Route: 048
  4. SEROQUEL [Suspect]
     Dosage: 400 MG IN AM AND 400 MG PM
     Route: 048
  5. RISPERDAL [Concomitant]
  6. TRILEPTAL [Concomitant]
  7. COGENTIN [Concomitant]
  8. ZOLOFT [Concomitant]

REACTIONS (4)
  - LACTATION DISORDER [None]
  - SUICIDAL IDEATION [None]
  - TARDIVE DYSKINESIA [None]
  - TREMOR [None]
